FAERS Safety Report 25253503 (Version 1)
Quarter: 2025Q2

REPORT INFORMATION
  Report Type: Spontaneous
  Country: US (occurrence: US)
  Receive Date: 20250430
  Receipt Date: 20250430
  Transmission Date: 20250717
  Serious: No
  Sender: Kenvue
  Company Number: US-KENVUE-20250406496

PATIENT

DRUGS (2)
  1. WOMENS ROGAINE UNSCENTED [Suspect]
     Active Substance: MINOXIDIL
     Indication: Product used for unknown indication
     Route: 061
  2. rogaine 2-1 shampoo and conditioner [Concomitant]
     Indication: Product used for unknown indication
     Route: 061

REACTIONS (2)
  - Alopecia [Unknown]
  - Application site paraesthesia [Unknown]
